FAERS Safety Report 15663414 (Version 2)
Quarter: 2018Q4

REPORT INFORMATION
  Report Type: Spontaneous
  Country: SK (occurrence: SK)
  Receive Date: 20181128
  Receipt Date: 20181206
  Transmission Date: 20190205
  Serious: Yes (Hospitalization)
  Sender: FDA-Public Use
  Company Number: SK-ROCHE-2220498

PATIENT
  Age: 62 Year
  Sex: Male
  Weight: 80 kg

DRUGS (2)
  1. OMALIZUMAB. [Suspect]
     Active Substance: OMALIZUMAB
     Route: 065
  2. OMALIZUMAB. [Suspect]
     Active Substance: OMALIZUMAB
     Indication: ASTHMA
     Route: 065
     Dates: start: 20130211, end: 201701

REACTIONS (7)
  - Dyspnoea [Unknown]
  - Lung consolidation [Unknown]
  - Pleural effusion [Unknown]
  - Disease recurrence [Unknown]
  - Productive cough [Unknown]
  - Pulmonary infarction [Unknown]
  - Embolism [Unknown]

NARRATIVE: CASE EVENT DATE: 20160113
